APPROVED DRUG PRODUCT: COLYTE WITH FLAVOR PACKS
Active Ingredient: POLYETHYLENE GLYCOL 3350; POTASSIUM CHLORIDE; SODIUM BICARBONATE; SODIUM CHLORIDE; SODIUM SULFATE ANHYDROUS
Strength: 240GM/BOT;2.98GM/BOT;6.72GM/BOT;5.84GM/BOT;22.72GM/BOT
Dosage Form/Route: FOR SOLUTION;ORAL
Application: N018983 | Product #012
Applicant: QUAGEN PHARMACEUTICALS LLC
Approved: Oct 8, 1998 | RLD: No | RS: No | Type: DISCN